FAERS Safety Report 20874341 (Version 1)
Quarter: 2022Q2

REPORT INFORMATION
  Report Type: Spontaneous
  Country: None (occurrence: CA)
  Receive Date: 20220525
  Receipt Date: 20220525
  Transmission Date: 20220721
  Serious: Yes (Other)
  Sender: FDA-Public Use
  Company Number: CA-Sunstar Americas Inc.-2129202

PATIENT

DRUGS (1)
  1. PAROEX [Suspect]
     Active Substance: CHLORHEXIDINE GLUCONATE
     Indication: Product used for unknown indication
     Route: 048
     Dates: start: 20160509, end: 20160530

REACTIONS (3)
  - Rash [Unknown]
  - Swelling [Unknown]
  - Tongue discomfort [Unknown]
